FAERS Safety Report 8012185-9 (Version None)
Quarter: 2011Q4

REPORT INFORMATION
  Report Type: 
  Country: None (occurrence: None)
  Receive Date: 20111228
  Receipt Date: 20111219
  Transmission Date: 20120403
  Serious: Yes (Other)
  Sender: FDA-Public Use
  Company Number: CA-ASTRAZENECA-2011SE77348

PATIENT
  Age: 64 Year
  Sex: Female

DRUGS (7)
  1. ASPIRIN [Concomitant]
  2. VITAMIN D [Concomitant]
  3. ACETAMINOPHEN [Concomitant]
  4. FASLODEX [Suspect]
     Route: 030
     Dates: start: 20110830
  5. FLOVENT [Concomitant]
  6. XALATAN [Concomitant]
     Indication: GLAUCOMA
  7. LYRICA [Concomitant]
     Indication: PARAESTHESIA

REACTIONS (1)
  - HYPOAESTHESIA [None]
